FAERS Safety Report 7244347-2 (Version None)
Quarter: 2011Q1

REPORT INFORMATION
  Report Type: 
  Country: None (occurrence: None)
  Receive Date: 20110125
  Receipt Date: 20110118
  Transmission Date: 20110831
  Serious: Yes (Other)
  Sender: FDA-Public Use
  Company Number: ES-JNJFOC-20100400039

PATIENT
  Age: 48 Year
  Sex: Male
  Weight: 85 kg

DRUGS (4)
  1. RISPERDAL CONSTA [Suspect]
     Route: 030
  2. RISPERDAL CONSTA [Suspect]
     Route: 030
  3. RISPERDAL CONSTA [Suspect]
     Route: 030
  4. RISPERDAL CONSTA [Suspect]
     Indication: ILL-DEFINED DISORDER
     Route: 030

REACTIONS (8)
  - NERVOUSNESS [None]
  - MALAISE [None]
  - ABDOMINAL PAIN UPPER [None]
  - OVERDOSE [None]
  - HEADACHE [None]
  - PAIN [None]
  - FLATULENCE [None]
  - DYSPNOEA [None]
